FAERS Safety Report 5481777-3 (Version None)
Quarter: 2007Q4

REPORT INFORMATION
  Report Type: 
  Country: None (occurrence: None)
  Receive Date: 20071010
  Receipt Date: 20070925
  Transmission Date: 20080405
  Serious: Yes (Death)
  Sender: FDA-Public Use
  Company Number: DE-GENENTECH-249131

PATIENT
  Sex: Female
  Weight: 66.667 kg

DRUGS (2)
  1. BEVACIZUMAB [Suspect]
     Indication: BREAST CANCER
     Dosage: 10 MG/M2, UNK
     Route: 042
     Dates: start: 20070919
  2. TAXOL [Concomitant]
     Indication: BREAST CANCER
     Dates: start: 20070821

REACTIONS (1)
  - CARDIAC DISORDER [None]
